FAERS Safety Report 7968459-0 (Version None)
Quarter: 2011Q4

REPORT INFORMATION
  Report Type: 
  Country: None (occurrence: None)
  Receive Date: 20111209
  Receipt Date: 20111130
  Transmission Date: 20120403
  Serious: No
  Sender: FDA-Public Use
  Company Number: SV-ELI_LILLY_AND_COMPANY-SV201112000247

PATIENT
  Age: 48 Year
  Sex: Male

DRUGS (2)
  1. TADALAFIL [Suspect]
     Indication: OFF LABEL USE
     Dosage: 20 MG, UNK
     Dates: start: 20111030
  2. METOPROLOL TARTRATE [Concomitant]

REACTIONS (4)
  - OFF LABEL USE [None]
  - SCOTOMA [None]
  - VISUAL ACUITY REDUCED [None]
  - OPTIC NEURITIS [None]
